FAERS Safety Report 8996988 (Version 1)
Quarter: 2012Q4

REPORT INFORMATION
  Report Type: Spontaneous
  Country: US (occurrence: None)
  Receive Date: 20121231
  Receipt Date: 20121231
  Transmission Date: 20130627
  Serious: No
  Sender: FDA-Public Use
  Company Number: None

PATIENT
  Sex: Female
  Weight: 75 kg

DRUGS (1)
  1. TAMOXIFEN [Suspect]
     Route: 048
     Dates: end: 20121226

REACTIONS (1)
  - Ovarian cyst [None]
